FAERS Safety Report 19756288 (Version 1)
Quarter: 2021Q3

REPORT INFORMATION
  Report Type: Spontaneous
  Country: CN (occurrence: CN)
  Receive Date: 20210828
  Receipt Date: 20210828
  Transmission Date: 20211014
  Serious: Yes (Hospitalization)
  Sender: FDA-Public Use
  Company Number: CN-ROCHE-2895420

PATIENT
  Age: 69 Year
  Sex: Male
  Weight: 61 kg

DRUGS (8)
  1. SODIUM CHLORIDE. [Concomitant]
     Active Substance: SODIUM CHLORIDE
     Route: 041
     Dates: start: 20210715
  2. TISLELIZUMAB [Suspect]
     Active Substance: TISLELIZUMAB
     Indication: ADENOCARCINOMA
  3. HERCEPTIN [Suspect]
     Active Substance: TRASTUZUMAB
     Indication: ULCER
     Route: 041
     Dates: start: 20210715
  4. TISLELIZUMAB [Suspect]
     Active Substance: TISLELIZUMAB
     Indication: ULCER
     Route: 041
     Dates: start: 20210715
  5. SODIUM CHLORIDE. [Concomitant]
     Active Substance: SODIUM CHLORIDE
     Route: 041
     Dates: start: 20210715
  6. HERCEPTIN [Suspect]
     Active Substance: TRASTUZUMAB
     Indication: GASTRIC CANCER
  7. HERCEPTIN [Suspect]
     Active Substance: TRASTUZUMAB
     Indication: ADENOCARCINOMA
  8. TISLELIZUMAB [Suspect]
     Active Substance: TISLELIZUMAB
     Indication: GASTRIC CANCER

REACTIONS (5)
  - Intentional product use issue [Unknown]
  - Thrombocytopenia [Recovering/Resolving]
  - Off label use [Unknown]
  - White blood cell count decreased [Recovered/Resolved]
  - Granulocyte count decreased [Recovered/Resolved]

NARRATIVE: CASE EVENT DATE: 20210719
